FAERS Safety Report 22600181 (Version 1)
Quarter: 2023Q2

REPORT INFORMATION
  Report Type: Spontaneous
  Country: KR (occurrence: KR)
  Receive Date: 20230614
  Receipt Date: 20230614
  Transmission Date: 20230722
  Serious: Yes (Disabling, Other)
  Sender: FDA-Public Use
  Company Number: KR-PFIZER INC-PV202300103397

PATIENT
  Age: 9 Year
  Sex: Male

DRUGS (22)
  1. VINCRISTINE SULFATE [Suspect]
     Active Substance: VINCRISTINE SULFATE
     Indication: Burkitt^s lymphoma stage IV
     Dosage: 1 MG, CYCLIC (REDUCTION PHASE)
     Dates: start: 20170817, end: 20170824
  2. VINCRISTINE SULFATE [Suspect]
     Active Substance: VINCRISTINE SULFATE
     Dosage: 2 MG, CYCLIC (INDUCTION PHASE)
     Dates: start: 20170824, end: 20170918
  3. VINCRISTINE SULFATE [Suspect]
     Active Substance: VINCRISTINE SULFATE
     Dosage: 2 MG, CYCLIC (MAINTENANCE 1)
     Dates: start: 20171204, end: 20171208
  4. CYCLOPHOSPHAMIDE [Concomitant]
     Active Substance: CYCLOPHOSPHAMIDE
     Indication: Burkitt^s lymphoma stage IV
     Dosage: UNK UNK, CYCLIC (REDUCTION PHASE)
     Dates: start: 20170817, end: 20170824
  5. CYCLOPHOSPHAMIDE [Concomitant]
     Active Substance: CYCLOPHOSPHAMIDE
     Dosage: UNK UNK, CYCLIC (INDUCTION PHASE)
     Dates: start: 20170824, end: 20170918
  6. CYCLOPHOSPHAMIDE [Concomitant]
     Active Substance: CYCLOPHOSPHAMIDE
     Dosage: UNK UNK, CYCLIC (MAINTENANCE)
     Dates: start: 20171204, end: 20171208
  7. PREDNISONE [Concomitant]
     Active Substance: PREDNISONE
     Indication: Burkitt^s lymphoma stage IV
     Dosage: UNK UNK, CYCLIC (REDUCTION PHASE)
     Route: 037
     Dates: start: 20170817, end: 20170824
  8. PREDNISONE [Concomitant]
     Active Substance: PREDNISONE
     Dosage: UNK UNK, CYCLIC (INDUCTION PHASE)
     Dates: start: 20170824, end: 20170918
  9. PREDNISONE [Concomitant]
     Active Substance: PREDNISONE
     Dosage: UNK UNK, CYCLIC (MAINTENANCE)
     Dates: start: 20171204, end: 20171208
  10. METHOTREXATE [Concomitant]
     Active Substance: METHOTREXATE
     Indication: Burkitt^s lymphoma stage IV
     Dosage: UNK UNK, CYCLIC (REDUCTION PHASE)
     Route: 037
     Dates: start: 20170817, end: 20170824
  11. METHOTREXATE [Concomitant]
     Active Substance: METHOTREXATE
     Dosage: UNK UNK, CYCLIC (INDUCTION PHASE)
     Route: 037
     Dates: start: 20170824, end: 20170918
  12. METHOTREXATE [Concomitant]
     Active Substance: METHOTREXATE
     Dosage: UNK UNK, CYCLIC (MAINTENANCE)
     Route: 037
     Dates: start: 20171204, end: 20171208
  13. HYDROCORTISONE [Concomitant]
     Active Substance: HYDROCORTISONE
     Indication: Burkitt^s lymphoma stage IV
     Dosage: UNK UNK, CYCLIC (REDUCTION PHASE)
     Route: 037
     Dates: start: 20170817, end: 20170824
  14. HYDROCORTISONE [Concomitant]
     Active Substance: HYDROCORTISONE
     Dosage: UNK UNK, CYCLIC (INDUCTION PHASE)
     Route: 037
     Dates: start: 20170824, end: 20170918
  15. HYDROCORTISONE [Concomitant]
     Active Substance: HYDROCORTISONE
     Dosage: UNK UNK, CYCLIC (MAINTENANCE)
     Route: 037
     Dates: start: 20171204, end: 20171208
  16. CYTARABINE [Concomitant]
     Active Substance: CYTARABINE
     Indication: Burkitt^s lymphoma stage IV
     Dosage: UNK UNK, CYCLIC (REDUCTION PHASE)
     Route: 037
     Dates: start: 20170817, end: 20170824
  17. CYTARABINE [Concomitant]
     Active Substance: CYTARABINE
     Dosage: UNK UNK, CYCLIC (INDUCTION PHASE)
     Route: 037
     Dates: start: 20170824, end: 20170918
  18. CYTARABINE [Concomitant]
     Active Substance: CYTARABINE
     Dosage: UNK UNK, CYCLIC (MAINTENANCE)
     Route: 037
     Dates: start: 20171204, end: 20171208
  19. DOXORUBICIN [Concomitant]
     Active Substance: DOXORUBICIN
     Indication: Burkitt^s lymphoma stage IV
     Dosage: UNK UNK, CYCLIC (INDUCTION PHASE)
     Dates: start: 20170824, end: 20170918
  20. DOXORUBICIN [Concomitant]
     Active Substance: DOXORUBICIN
     Dosage: UNK UNK, CYCLIC (MAINTENANCE)
     Dates: start: 20171204, end: 20171208
  21. CYTARABINE [Concomitant]
     Active Substance: CYTARABINE
     Indication: Burkitt^s lymphoma stage IV
     Dosage: HIGH DOSE CONSOLIDATION
     Dates: start: 20171011, end: 20171105
  22. ETOPOSIDE [Concomitant]
     Active Substance: ETOPOSIDE
     Indication: Burkitt^s lymphoma stage IV
     Dosage: CONSOLIDATION

REACTIONS (1)
  - Optic neuropathy [Not Recovered/Not Resolved]

NARRATIVE: CASE EVENT DATE: 20171226
